FAERS Safety Report 10402393 (Version 1)
Quarter: 2014Q1

REPORT INFORMATION
  Report Type: Spontaneous
  Country: US (occurrence: None)
  Receive Date: 20130815
  Receipt Date: 20130815
  Transmission Date: 20141002
  Serious: Yes (Other)
  Sender: FDA-Public Use
  Company Number: ADR-2013-00420

PATIENT
  Sex: Female

DRUGS (1)
  1. LIORESAL INTRATHECAL (BACLOFEN INJECTION)500MCG/ML [Suspect]
     Indication: MUSCLE SPASTICITY

REACTIONS (5)
  - Vision blurred [None]
  - Hypotonia [None]
  - Muscular weakness [None]
  - Overdose [None]
  - Implant site extravasation [None]
